FAERS Safety Report 24342020 (Version 1)
Quarter: 2024Q3

REPORT INFORMATION
  Report Type: Spontaneous
  Country: CN (occurrence: CN)
  Receive Date: 20240920
  Receipt Date: 20240920
  Transmission Date: 20241017
  Serious: Yes (Hospitalization, Other)
  Sender: ASTELLAS
  Company Number: CN-GILEAD-2024-0687204

PATIENT
  Age: 52 Year
  Sex: Male

DRUGS (8)
  1. AMPHOTERICIN B [Suspect]
     Active Substance: AMPHOTERICIN B
     Indication: Anti-infective therapy
     Dosage: 100 MG, QD
     Route: 042
     Dates: start: 20240818, end: 20240823
  2. AMPHOTERICIN B [Suspect]
     Active Substance: AMPHOTERICIN B
     Indication: Antifungal treatment
  3. FLUCONAZOLE [Suspect]
     Active Substance: FLUCONAZOLE
     Indication: Kidney transplant rejection
     Dosage: 150 MG, BID
     Route: 048
     Dates: start: 20240819, end: 20240827
  4. PIPERACILLIN SODIUM\TAZOBACTAM SODIUM [Suspect]
     Active Substance: PIPERACILLIN SODIUM\TAZOBACTAM SODIUM
     Indication: Pneumonia
     Dosage: 4.5 G, BID
     Route: 042
     Dates: start: 20240823, end: 20240826
  5. MEROPENEM [Suspect]
     Active Substance: MEROPENEM
     Indication: Pneumonia
     Dosage: 500 MG, TID
     Route: 042
     Dates: start: 20240819, end: 20240827
  6. SULFAMETHOXAZOLE [Concomitant]
     Active Substance: SULFAMETHOXAZOLE
     Indication: Product used for unknown indication
     Dosage: ONE TABLET AT A TIME, THREE TIMES A DAY, ORALLY
     Route: 048
  7. CASPOFUNGIN [Concomitant]
     Active Substance: CASPOFUNGIN
     Indication: Product used for unknown indication
     Dosage: 50 MG ONCE A DAY VIA INTRAVENOUS DRIP
     Route: 042
  8. ERYTHROPOIETIN [EPOETIN BETA] [Concomitant]
     Indication: Anaemia
     Route: 065

REACTIONS (1)
  - Myelosuppression [Not Recovered/Not Resolved]

NARRATIVE: CASE EVENT DATE: 20240823
